FAERS Safety Report 26082691 (Version 1)
Quarter: 2025Q4

REPORT INFORMATION
  Report Type: Spontaneous
  Country: US (occurrence: None)
  Receive Date: 20251123
  Receipt Date: 20251123
  Transmission Date: 20260117
  Serious: Yes (Death)
  Sender: FDA-CTU
  Company Number: None

PATIENT
  Age: 61 Year
  Sex: Male

DRUGS (3)
  1. BRILINTA [Suspect]
     Active Substance: TICAGRELOR
     Indication: Stent placement
     Dosage: 1 TABLET DAILY ORAL ?
     Route: 048
     Dates: start: 20250218, end: 20250226
  2. WARFARIN [Suspect]
     Active Substance: WARFARIN
  3. LOVENOX [Suspect]
     Active Substance: ENOXAPARIN SODIUM

REACTIONS (3)
  - Injection site haemorrhage [None]
  - Epistaxis [None]
  - Cerebral haemorrhage [None]

NARRATIVE: CASE EVENT DATE: 20250225
